FAERS Safety Report 6230677-X (Version None)
Quarter: 2009Q2

REPORT INFORMATION
  Report Type: 
  Country: None (occurrence: None)
  Receive Date: 20090611
  Receipt Date: 20090601
  Transmission Date: 20091009
  Serious: Yes (Hospitalization)
  Sender: FDA-Public Use
  Company Number: CERZ-1000665

PATIENT
  Age: 24 Year
  Sex: Male
  Weight: 44 kg

DRUGS (1)
  1. CEREZYME [Suspect]
     Indication: GAUCHER'S DISEASE
     Dosage: 59 U/KG, Q2W, INTRAVENOUS
     Route: 042
     Dates: start: 20050210

REACTIONS (2)
  - ARRHYTHMIA [None]
  - ARTHRALGIA [None]
